FAERS Safety Report 6710753-5 (Version None)
Quarter: 2010Q2

REPORT INFORMATION
  Report Type: 
  Country: None (occurrence: None)
  Receive Date: 20100504
  Receipt Date: 20100504
  Transmission Date: 20101027
  Serious: Yes (Life-Threatening, Hospitalization)
  Sender: FDA-Public Use
  Company Number: None

PATIENT
  Age: 94 Year
  Sex: Female
  Weight: 56.6996 kg

DRUGS (2)
  1. CITALOPRAM HYDROBROMIDE [Suspect]
     Indication: DEPRESSION
     Dosage: 20 MGM DAILY PO
     Route: 048
     Dates: start: 20000101, end: 20100317
  2. IBUPROFEN [Suspect]
     Indication: ARTHRALGIA
     Dosage: 400 MGM 2 TIMES A DAY PO
     Route: 048
     Dates: start: 20100116, end: 20100317

REACTIONS (1)
  - GASTROINTESTINAL HAEMORRHAGE [None]
